FAERS Safety Report 9623389 (Version 1)
Quarter: 2013Q4

REPORT INFORMATION
  Report Type: Spontaneous
  Country: US (occurrence: US)
  Receive Date: 20131015
  Receipt Date: 20131015
  Transmission Date: 20140711
  Serious: No
  Sender: FDA-Public Use
  Company Number: US-PURDUE-USA-2012-0087775

PATIENT
  Age: 83 Year
  Sex: Female
  Weight: 43.08 kg

DRUGS (3)
  1. BUTRANS [Suspect]
     Indication: PAIN
     Dosage: 10 MCG/HR, UNK
     Route: 062
     Dates: start: 20120419
  2. BUTRANS [Suspect]
     Indication: FRACTURE
     Dosage: 5 MCG/HR, UNK
     Route: 062
  3. BUTRANS [Suspect]
     Indication: LUMBAR SPINAL STENOSIS

REACTIONS (5)
  - Inadequate analgesia [Unknown]
  - Headache [Unknown]
  - Dizziness [Not Recovered/Not Resolved]
  - Nausea [Unknown]
  - Unevaluable event [Unknown]
